FAERS Safety Report 9417822 (Version 3)
Quarter: 2013Q4

REPORT INFORMATION
  Report Type: Spontaneous
  Country: US (occurrence: US)
  Receive Date: 20130724
  Receipt Date: 20131009
  Transmission Date: 20140711
  Serious: No
  Sender: FDA-Public Use
  Company Number: US-PFIZER INC-2013214762

PATIENT
  Age: 50 Year
  Sex: Female
  Weight: 92.52 kg

DRUGS (4)
  1. DETROL LA [Suspect]
     Dosage: 2 MG, 2X/DAY
     Dates: end: 2012
  2. XANAX [Concomitant]
     Dosage: UNK
  3. TRAMADOL [Concomitant]
     Dosage: UNK
  4. MOBIC [Concomitant]
     Dosage: 15 MG, 1X/DAY

REACTIONS (2)
  - Drug ineffective [Unknown]
  - Weight increased [Unknown]
